FAERS Safety Report 22607353 (Version 5)
Quarter: 2024Q1

REPORT INFORMATION
  Report Type: Report from Study
  Country: US (occurrence: US)
  Receive Date: 20230616
  Receipt Date: 20240328
  Transmission Date: 20240409
  Serious: Yes (Hospitalization)
  Sender: FDA-Public Use
  Company Number: US-ACADIA PHARMACEUTICALS INC.-ACA-2023-PIM-002048

PATIENT
  Sex: Female

DRUGS (3)
  1. NUPLAZID [Suspect]
     Active Substance: PIMAVANSERIN TARTRATE
     Indication: Parkinson^s disease psychosis
     Dosage: 34 MILLIGRAM, QD
     Route: 048
     Dates: start: 202312
  2. QUETIAPINE [Concomitant]
     Active Substance: QUETIAPINE
  3. GABAPENTIN [Concomitant]
     Active Substance: GABAPENTIN

REACTIONS (5)
  - Wrist fracture [Not Recovered/Not Resolved]
  - Product dose omission issue [Recovered/Resolved]
  - Hallucination [Recovered/Resolved]
  - Hallucination [Not Recovered/Not Resolved]
  - Hallucination [Unknown]
